FAERS Safety Report 11764589 (Version 1)
Quarter: 2015Q4

REPORT INFORMATION
  Report Type: Spontaneous
  Country: US (occurrence: US)
  Receive Date: 20151120
  Receipt Date: 20151120
  Transmission Date: 20160304
  Serious: No
  Sender: FDA-Public Use
  Company Number: US-ELI_LILLY_AND_COMPANY-US201304000139

PATIENT
  Age: 68 Year
  Sex: Female
  Weight: 39.91 kg

DRUGS (2)
  1. OXYCODONE [Concomitant]
     Active Substance: OXYCODONE
     Dosage: UNK, UNKNOWN
     Route: 065
  2. FORTEO [Suspect]
     Active Substance: TERIPARATIDE
     Indication: OSTEOPOROSIS
     Dosage: UNK, QD
     Route: 065
     Dates: start: 20130322, end: 20130327

REACTIONS (9)
  - Feeling abnormal [Unknown]
  - Feeling jittery [Unknown]
  - Nausea [Unknown]
  - Inappropriate schedule of drug administration [Unknown]
  - Abdominal pain upper [Unknown]
  - Drug dose omission [Unknown]
  - Irritability [Unknown]
  - Needle issue [Unknown]
  - Bone pain [Unknown]

NARRATIVE: CASE EVENT DATE: 201303
